FAERS Safety Report 7027672-X (Version None)
Quarter: 2010Q4

REPORT INFORMATION
  Report Type: 
  Country: None (occurrence: None)
  Receive Date: 20101004
  Receipt Date: 20100921
  Transmission Date: 20110411
  Serious: Yes (Hospitalization)
  Sender: FDA-Public Use
  Company Number: SG-WATSON-2010-13010

PATIENT
  Age: 74 Year
  Sex: Female

DRUGS (1)
  1. DIPYRIDAMOLE (WATSON LABORATORIES) [Suspect]
     Indication: TRANSIENT ISCHAEMIC ATTACK
     Dosage: 0.5 MG/KG INFUSION

REACTIONS (1)
  - STRESS CARDIOMYOPATHY [None]
